FAERS Safety Report 10153179 (Version 2)
Quarter: 2014Q2

REPORT INFORMATION
  Report Type: Spontaneous
  Country: FR (occurrence: FR)
  Receive Date: 20140505
  Receipt Date: 20140505
  Transmission Date: 20141212
  Serious: Yes (Other)
  Sender: FDA-Public Use
  Company Number: FR-TEVA-466990ISR

PATIENT
  Age: 73 Year
  Sex: Male
  Weight: 80 kg

DRUGS (5)
  1. CAPECITABINE TEVA 500MG [Suspect]
     Indication: PULMONARY MASS
     Dosage: 6 TABLET DAILY;
     Route: 048
     Dates: start: 20140214, end: 20140227
  2. PREVISCAN [Concomitant]
     Indication: PULMONARY EMBOLISM
     Dosage: .5 TABLET DAILY;
     Route: 048
     Dates: start: 20140105
  3. OMEPRAZOLE [Concomitant]
     Indication: PROPHYLAXIS AGAINST GASTROINTESTINAL ULCER
     Dosage: 1 TABLET DAILY;
     Route: 048
  4. LANTUS [Concomitant]
     Indication: PANCREATECTOMY
     Dosage: 48 IU (INTERNATIONAL UNIT) DAILY; SINCE 11-SEP
     Route: 058
  5. NOVOMIX 30 [Concomitant]
     Indication: DIABETES MELLITUS
     Dosage: 48 IU (INTERNATIONAL UNIT) DAILY;
     Route: 058

REACTIONS (5)
  - Hyperglycaemia [Recovered/Resolved]
  - Fungal infection [Recovered/Resolved]
  - Diarrhoea [Recovered/Resolved]
  - Asthenia [Recovered/Resolved]
  - Lacrimation increased [Recovered/Resolved]
